FAERS Safety Report 13155200 (Version 1)
Quarter: 2017Q1

REPORT INFORMATION
  Report Type: Spontaneous
  Country: US (occurrence: US)
  Receive Date: 20170126
  Receipt Date: 20170126
  Transmission Date: 20170428
  Serious: No
  Sender: FDA-Public Use
  Company Number: US-BRACCO-014102

PATIENT
  Sex: Female

DRUGS (1)
  1. E-Z-HD [Suspect]
     Active Substance: BARIUM SULFATE
     Indication: DIAGNOSTIC PROCEDURE
     Route: 048

REACTIONS (3)
  - Product preparation error [Recovered/Resolved]
  - Product colour issue [Recovered/Resolved]
  - No adverse event [Not Recovered/Not Resolved]
